FAERS Safety Report 7053322-2 (Version None)
Quarter: 2010Q4

REPORT INFORMATION
  Report Type: 
  Country: None (occurrence: None)
  Receive Date: 20101020
  Receipt Date: 20101015
  Transmission Date: 20110411
  Serious: Yes (Life-Threatening, Hospitalization)
  Sender: FDA-Public Use
  Company Number: JP-NOVOPROD-310534

PATIENT
  Age: 61 Year
  Sex: Male

DRUGS (1)
  1. NOVORAPID 30 MIX CHU FLEXPEN [Suspect]
     Indication: TYPE 2 DIABETES MELLITUS
     Dosage: 28 U, QD
     Route: 058
     Dates: start: 20060101

REACTIONS (3)
  - DIABETIC KETOACIDOSIS [None]
  - LOSS OF CONSCIOUSNESS [None]
  - PERITONITIS [None]
